FAERS Safety Report 15385459 (Version 1)
Quarter: 2018Q3

REPORT INFORMATION
  Report Type: Spontaneous
  Country: US (occurrence: US)
  Receive Date: 20180914
  Receipt Date: 20180914
  Transmission Date: 20181010
  Serious: No
  Sender: FDA-Public Use
  Company Number: US-ALKERMES INC.-ALK-2018-004815

PATIENT
  Age: 54 Year
  Sex: Male

DRUGS (3)
  1. VIVITROL [Suspect]
     Active Substance: NALTREXONE
     Indication: DRUG DEPENDENCE
     Dosage: 380 MG, QMO
     Route: 030
     Dates: start: 2017
  2. VIVITROL [Suspect]
     Active Substance: NALTREXONE
     Indication: ALCOHOLISM
  3. OTHER THERAPEUTIC PRODUCTS [Concomitant]
     Active Substance: UNSPECIFIED INGREDIENT
     Indication: POST-TRAUMATIC STRESS DISORDER
     Dosage: UNK

REACTIONS (4)
  - Suicide threat [Not Recovered/Not Resolved]
  - Drug dose omission [Not Recovered/Not Resolved]
  - Feeling of despair [Unknown]
  - Fear [Not Recovered/Not Resolved]

NARRATIVE: CASE EVENT DATE: 201808
